FAERS Safety Report 7682063 (Version 4)
Quarter: 2016Q2

REPORT INFORMATION
  Report Type: Report from Study
  Country: IT (occurrence: IT)
  Receive Date: 20101124
  Receipt Date: 20160428
  Transmission Date: 20160815
  Serious: Yes (Hospitalization)
  Sender: FDA-Public Use
  Company Number: PHHO2010IT17142

PATIENT
  Age: 76 Year
  Sex: Male
  Weight: 60 kg

DRUGS (8)
  1. ALISKIREN [Suspect]
     Active Substance: ALISKIREN
     Dosage: 300 MG, UNK
     Route: 048
     Dates: start: 20101115
  2. ALISKIREN [Suspect]
     Active Substance: ALISKIREN
     Indication: CARDIAC FAILURE
     Dosage: UNK, RUN IN PHASE
     Route: 048
     Dates: start: 20100730, end: 20100825
  3. ALISKIREN [Suspect]
     Active Substance: ALISKIREN
     Dosage: 300 MG, UNK
     Route: 048
     Dates: start: 20100825, end: 20101111
  4. COMPARATOR ENALAPRIL [Suspect]
     Active Substance: ENALAPRIL
     Indication: CARDIAC FAILURE
     Dosage: 10 MG, UNK (RUN IN PHASE)
     Route: 048
     Dates: start: 20100702, end: 20100715
  5. COMPARATOR ENALAPRIL [Suspect]
     Active Substance: ENALAPRIL
     Dosage: 20 MG, UNK, (RUN IN PHASE)
     Route: 048
     Dates: start: 20100716, end: 20100825
  6. WARFARIN [Concomitant]
     Active Substance: WARFARIN
  7. MADOPAR [Suspect]
     Active Substance: BENSERAZIDE HYDROCHLORIDE\LEVODOPA
  8. BISOPROLOL [Suspect]
     Active Substance: BISOPROLOL

REACTIONS (2)
  - Orthostatic hypotension [Recovered/Resolved]
  - Syncope [Recovered/Resolved]

NARRATIVE: CASE EVENT DATE: 20101111
